FAERS Safety Report 7255606-1 (Version None)
Quarter: 2011Q1

REPORT INFORMATION
  Report Type: 
  Country: None (occurrence: None)
  Receive Date: 20110129
  Receipt Date: 20100421
  Transmission Date: 20110831
  Serious: No
  Sender: FDA-Public Use
  Company Number: US-ABBOTT-10P-163-0640050-00

PATIENT
  Sex: Female
  Weight: 78.542 kg

DRUGS (2)
  1. LEFLUNOMIDE [Concomitant]
     Indication: PRODUCT USED FOR UNKNOWN INDICATION
  2. HUMIRA [Suspect]
     Indication: RHEUMATOID ARTHRITIS
     Dates: start: 20100407, end: 20100421

REACTIONS (3)
  - ALVEOLAR OSTEITIS [None]
  - DENTAL CARIES [None]
  - ORAL PAIN [None]
